FAERS Safety Report 7357107-9 (Version None)
Quarter: 2011Q1

REPORT INFORMATION
  Report Type: 
  Country: None (occurrence: None)
  Receive Date: 20110317
  Receipt Date: 20110225
  Transmission Date: 20110831
  Serious: Yes (Hospitalization, Other)
  Sender: FDA-Public Use
  Company Number: US-BAYER-2011-022846

PATIENT
  Sex: Female
  Weight: 116 kg

DRUGS (13)
  1. YASMIN [Suspect]
     Dosage: UNK
     Dates: start: 20090123, end: 20090803
  2. YAZ [Suspect]
     Dosage: UNK
     Dates: start: 20090123, end: 20090803
  3. CARAFATE [Concomitant]
  4. ADVAIR DISKUS 100/50 [Concomitant]
     Indication: ASTHMA
  5. PROPRANOLOL [Concomitant]
     Indication: HYPERTENSION
  6. DEPO-PROVERA [Concomitant]
     Indication: CONTRACEPTION
  7. NAPROXEN [Concomitant]
  8. WELLBUTRIN [Concomitant]
     Indication: DEPRESSION
  9. WELLBUTRIN [Concomitant]
     Indication: ATTENTION DEFICIT/HYPERACTIVITY DISORDER
  10. KLONOPIN [Concomitant]
     Indication: RESTLESS LEGS SYNDROME
  11. OCELLA [Suspect]
     Dosage: UNK
     Dates: start: 20090123, end: 20090803
  12. PROPRANOLOL [Concomitant]
     Indication: HEADACHE
  13. VICODIN [Concomitant]
     Indication: ANALGESIC THERAPY

REACTIONS (2)
  - CHOLECYSTITIS [None]
  - GALLBLADDER DISORDER [None]
